FAERS Safety Report 8900561 (Version 3)
Quarter: 2013Q3

REPORT INFORMATION
  Report Type: Report from Study
  Country: US (occurrence: US)
  Receive Date: 20121109
  Receipt Date: 20130926
  Transmission Date: 20140515
  Serious: Yes (Hospitalization)
  Sender: FDA-Public Use
  Company Number: US-ELI_LILLY_AND_COMPANY-US201210010062

PATIENT
  Age: 40 Year
  Sex: Female

DRUGS (5)
  1. TERIPARATIDE [Suspect]
     Indication: OSTEOPOROSIS
     Dosage: 20 UG, QD
     Dates: start: 201209
  2. POTASSIUM CHLORIDE [Concomitant]
     Dosage: 20 MEQ, QD HS
  3. OXYCONTIN [Concomitant]
     Dosage: 80 MG, BID
  4. PERCOCET                           /00446701/ [Concomitant]
     Dosage: 10 MG, QID
  5. XANAX [Concomitant]
     Dosage: 1 MG, PRN QID

REACTIONS (13)
  - Cardiac disorder [Unknown]
  - Chest pain [Recovered/Resolved]
  - Electrocardiogram T wave inversion [Unknown]
  - Mental status changes [Unknown]
  - Insomnia [Unknown]
  - Feeling abnormal [Unknown]
  - Anaemia [Unknown]
  - Vitamin D deficiency [Unknown]
  - Spinal fracture [Unknown]
  - Herpes zoster [Unknown]
  - Local swelling [Unknown]
  - Rash [Unknown]
  - Rash macular [Unknown]
